FAERS Safety Report 5670812-5 (Version None)
Quarter: 2008Q1

REPORT INFORMATION
  Report Type: 
  Country: None (occurrence: None)
  Receive Date: 20080317
  Receipt Date: 20080317
  Transmission Date: 20080703
  Serious: Yes (Other)
  Sender: FDA-Public Use
  Company Number: None

PATIENT
  Sex: Female

DRUGS (1)
  1. SANCTURA [Suspect]
     Dates: start: 20080215, end: 20080312

REACTIONS (3)
  - BLADDER SPASM [None]
  - DISEASE RECURRENCE [None]
  - URINARY INCONTINENCE [None]
